FAERS Safety Report 5699448-7 (Version None)
Quarter: 2008Q2

REPORT INFORMATION
  Report Type: 
  Country: None (occurrence: None)
  Receive Date: 20080407
  Receipt Date: 20080407
  Transmission Date: 20081010
  Serious: No
  Sender: FDA-Public Use
  Company Number: None

PATIENT

DRUGS (1)
  1. LOESTRIN FE 1.5/30 [Suspect]
     Indication: CONTRACEPTION
     Dosage: ONCE P.O. Q DAY
     Route: 048

REACTIONS (3)
  - FATIGUE [None]
  - HAEMORRHAGE [None]
  - MUSCLE SPASMS [None]
